FAERS Safety Report 9168466 (Version 6)
Quarter: 2013Q3

REPORT INFORMATION
  Report Type: Report from Study
  Country: CZ (occurrence: CZ)
  Receive Date: 20130318
  Receipt Date: 20130826
  Transmission Date: 20140515
  Serious: Yes (Death, Hospitalization)
  Sender: FDA-Public Use
  Company Number: CZ-BAYER-2013-030646

PATIENT
  Age: 27 Year
  Sex: Female
  Weight: 100 kg

DRUGS (9)
  1. REGORAFENIB [Suspect]
     Indication: COLORECTAL CANCER METASTATIC
     Dosage: 160 MG, QD
     Route: 048
     Dates: start: 20121227, end: 20130116
  2. REGORAFENIB [Suspect]
     Indication: COLORECTAL CANCER METASTATIC
     Dosage: 160 MG, QD
     Route: 048
     Dates: start: 20130121, end: 20130210
  3. REGORAFENIB [Suspect]
     Indication: COLORECTAL CANCER METASTATIC
     Dosage: 160 MG, QD
     Route: 048
     Dates: start: 20130221, end: 20130307
  4. HELICID [Concomitant]
     Indication: PROPHYLAXIS
     Dosage: 1 TBL. DAILY
     Route: 048
     Dates: start: 20130127
  5. SORBIFER [Concomitant]
     Indication: ANAEMIA PROPHYLAXIS
     Dosage: TOTAL DAILY DOSE 1 TBL.
     Route: 048
     Dates: start: 20111111
  6. IBALGIN [Concomitant]
     Indication: BACK PAIN
     Dosage: 400 MG, PRN
     Route: 048
     Dates: start: 20130124
  7. SURGAM [Concomitant]
     Indication: BACK PAIN
     Dosage: TOTAL DAILY DOSE 1 TBL. PRN
     Route: 048
     Dates: start: 20130221
  8. PRESTARIUM [Concomitant]
     Indication: HYPERTENSION
     Dosage: 1 TBL PRN
     Route: 048
     Dates: start: 20121227, end: 20121230
  9. PRESTARIUM [Concomitant]
     Indication: HYPERTENSION
     Dosage: 1/2 TBL ONCE DAILY
     Dates: start: 20121231

REACTIONS (3)
  - General physical health deterioration [Fatal]
  - Pancreatitis [Not Recovered/Not Resolved]
  - Tachycardia [Not Recovered/Not Resolved]
